FAERS Safety Report 8806466 (Version 1)
Quarter: 2012Q4

REPORT INFORMATION
  Report Type: 
  Country: FR (occurrence: FR)
  Receive Date: 20120925
  Receipt Date: 20120925
  Transmission Date: 20130627
  Serious: Yes (Death, Hospitalization)
  Sender: FDA-Public Use
  Company Number: FR-MPIJNJ-2012-06463

PATIENT

DRUGS (10)
  1. VELCADE [Suspect]
     Indication: MULTIPLE MYELOMA
     Dosage: 1.3 mg/m2, UNK
     Route: 042
     Dates: start: 20110708, end: 201108
  2. DIFFU K [Concomitant]
  3. FLUINDIONE [Concomitant]
  4. ESIDREX                            /00022001/ [Concomitant]
  5. TAHOR [Concomitant]
  6. ACEBUTOLOL [Concomitant]
  7. CORDARONE [Concomitant]
  8. VITAMIN B12                        /00056201/ [Concomitant]
  9. TARDYFERON /00023503/ [Concomitant]
  10. LASILIX                            /00032601/ [Concomitant]

REACTIONS (2)
  - Death [Fatal]
  - Cardiac failure congestive [Recovered/Resolved]
